FAERS Safety Report 4964783-4 (Version None)
Quarter: 2006Q2

REPORT INFORMATION
  Report Type: 
  Country: None (occurrence: None)
  Receive Date: 20060406
  Receipt Date: 20060328
  Transmission Date: 20061013
  Serious: Yes (Life-Threatening)
  Sender: FDA-Public Use
  Company Number: JP-ROCHE-442643

PATIENT
  Age: 28 Year
  Sex: Male
  Weight: 69 kg

DRUGS (1)
  1. ROCEPHIN [Suspect]
     Indication: GASTROENTERITIS BACTERIAL
     Route: 041
     Dates: start: 20060128, end: 20060128

REACTIONS (3)
  - DYSPNOEA [None]
  - FEELING ABNORMAL [None]
  - PALLOR [None]
